FAERS Safety Report 8308245 (Version 2)
Quarter: 2013Q1

REPORT INFORMATION
  Report Type: Spontaneous
  Country: US (occurrence: US)
  Receive Date: 20111222
  Receipt Date: 20130322
  Transmission Date: 20140127
  Serious: Yes (Other)
  Sender: FDA-Public Use
  Company Number: US-PURDUE-USA-2011-0079861

PATIENT
  Sex: Male

DRUGS (10)
  1. OXYCONTIN TABLETS [Suspect]
     Indication: HIP ARTHROPLASTY
     Dosage: UNK
     Dates: start: 2000
  2. COREG [Concomitant]
  3. LISINOPRIL [Concomitant]
  4. LASIX                              /00032601/ [Concomitant]
  5. SENNA                              /00142201/ [Concomitant]
  6. DULCOLAX                           /00064401/ [Concomitant]
  7. NORCO [Concomitant]
  8. DEMEROL APAP [Concomitant]
  9. XANAX [Concomitant]
  10. MEPERIDINE                         /00016301/ [Concomitant]

REACTIONS (2)
  - Drug dependence [Unknown]
  - Suicide attempt [Unknown]
